FAERS Safety Report 6387206-X (Version None)
Quarter: 2009Q4

REPORT INFORMATION
  Report Type: 
  Country: None (occurrence: None)
  Receive Date: 20091002
  Receipt Date: 20090917
  Transmission Date: 20100525
  Serious: Yes (Death)
  Sender: FDA-Public Use
  Company Number: JP-GENENTECH-290041

PATIENT
  Sex: Female
  Weight: 40 kg

DRUGS (11)
  1. XOLAIR [Suspect]
     Indication: STATUS ASTHMATICUS
     Dosage: 75 MG, SINGLE
     Route: 058
     Dates: start: 20090803, end: 20090803
  2. XOLAIR [Suspect]
     Indication: ASTHMA
  3. POLYGAM S/D [Concomitant]
     Indication: DRUG USE FOR UNKNOWN INDICATION
  4. PREDNISOLONE [Concomitant]
     Indication: DRUG USE FOR UNKNOWN INDICATION
     Dosage: UNK
     Dates: start: 20090813, end: 20090820
  5. ZOSYN [Concomitant]
     Indication: DRUG USE FOR UNKNOWN INDICATION
  6. MEPTIN [Concomitant]
     Indication: DRUG USE FOR UNKNOWN INDICATION
     Dosage: UNK
     Dates: start: 20090803, end: 20090820
  7. SOLU-CORTEF [Concomitant]
     Indication: DRUG USE FOR UNKNOWN INDICATION
     Dosage: UNK
     Dates: start: 20090803
  8. SOLU-CORTEF [Concomitant]
     Dosage: UNK
     Dates: end: 20090812
  9. THEOPHYLLINE [Concomitant]
     Indication: DRUG USE FOR UNKNOWN INDICATION
     Dosage: UNK
     Dates: start: 20090803, end: 20090820
  10. INTAL [Concomitant]
     Indication: DRUG USE FOR UNKNOWN INDICATION
     Dosage: UNK
     Dates: start: 20090803, end: 20090820
  11. HOKUNALIN [Concomitant]
     Indication: DRUG USE FOR UNKNOWN INDICATION
     Dosage: UNK
     Dates: start: 20090803, end: 20090820

REACTIONS (2)
  - ASTHMA [None]
  - PNEUMONIA [None]
